FAERS Safety Report 12422051 (Version 1)
Quarter: 2016Q2

REPORT INFORMATION
  Report Type: Spontaneous
  Country: US (occurrence: US)
  Receive Date: 20160531
  Receipt Date: 20160531
  Transmission Date: 20160815
  Serious: Yes (Hospitalization, Other)
  Sender: FDA-Public Use
  Company Number: US-FRI-1000085023

PATIENT
  Age: 83 Year
  Sex: Female
  Weight: 55.3 kg

DRUGS (3)
  1. LINZESS [Suspect]
     Active Substance: LINACLOTIDE
     Indication: IRRITABLE BOWEL SYNDROME
     Dosage: 145 MICROGRAM
     Route: 048
     Dates: start: 20160420, end: 20160505
  2. CARVEDILOL. [Concomitant]
     Active Substance: CARVEDILOL
     Indication: CARDIAC DISORDER
     Dosage: 6.25 MG
     Route: 048
  3. CARAFATE [Concomitant]
     Active Substance: SUCRALFATE
     Dosage: 2 GRAM
     Route: 048

REACTIONS (9)
  - Constipation [Recovered/Resolved]
  - Cardiac disorder [Recovering/Resolving]
  - Nausea [Recovered/Resolved]
  - Off label use [Recovered/Resolved]
  - Drug ineffective [Recovered/Resolved]
  - Intentional product misuse [Recovered/Resolved]
  - Back pain [Recovering/Resolving]
  - Unevaluable event [Recovering/Resolving]
  - Rectal obstruction [Recovered/Resolved]

NARRATIVE: CASE EVENT DATE: 2016
